FAERS Safety Report 11255900 (Version 2)
Quarter: 2015Q3

REPORT INFORMATION
  Report Type: Spontaneous
  Country: DE (occurrence: DE)
  Receive Date: 20150709
  Receipt Date: 20150717
  Transmission Date: 20151125
  Serious: Yes (Hospitalization, Other)
  Sender: FDA-Public Use
  Company Number: DE-ASTRAZENECA-2015SE67007

PATIENT
  Age: 33 Year
  Sex: Female
  Weight: 92 kg

DRUGS (7)
  1. BYETTA [Suspect]
     Active Substance: EXENATIDE
     Route: 065
     Dates: start: 201410, end: 201411
  2. BISOPROLOL [Concomitant]
     Active Substance: BISOPROLOL
  3. NOVORAPID [Concomitant]
     Active Substance: INSULIN ASPART
     Dosage: (8;6;8 I.U.) AND THEN STEPWISE INCREASE TO 24;12;14; 4 I.U
     Dates: start: 200510
  4. BYETTA [Suspect]
     Active Substance: EXENATIDE
     Route: 065
     Dates: start: 201301, end: 201410
  5. NOVORAPID [Concomitant]
     Active Substance: INSULIN ASPART
     Dates: start: 200601
  6. LISINOPRIL. [Concomitant]
     Active Substance: LISINOPRIL
  7. METFORMIN [Concomitant]
     Active Substance: METFORMIN HYDROCHLORIDE
     Dates: start: 200601

REACTIONS (1)
  - Renal colic [Unknown]

NARRATIVE: CASE EVENT DATE: 201411
